FAERS Safety Report 15456851 (Version 1)
Quarter: 2018Q4

REPORT INFORMATION
  Report Type: Spontaneous
  Country: FR (occurrence: FR)
  Receive Date: 20181002
  Receipt Date: 20181002
  Transmission Date: 20190204
  Serious: Yes (Hospitalization, Other)
  Sender: FDA-Public Use
  Company Number: FR-BAUSCH-BL-2018-026359

PATIENT
  Age: 58 Year
  Sex: Female
  Weight: 42.5 kg

DRUGS (3)
  1. PREDNISOLONE. [Suspect]
     Active Substance: PREDNISOLONE
     Indication: PRODUCT USED FOR UNKNOWN INDICATION
     Dosage: 10 MG, UNK
     Route: 065
  2. MYCOPHENOLATE MOFETIL. [Suspect]
     Active Substance: MYCOPHENOLATE MOFETIL
     Indication: PRODUCT USED FOR UNKNOWN INDICATION
     Dosage: 750 MG, UNK
     Route: 065
     Dates: end: 201803
  3. NULOJIX [Suspect]
     Active Substance: BELATACEPT
     Indication: RENAL TRANSPLANT
     Dosage: 250 MG, EVERY 28 DAYS
     Route: 042
     Dates: start: 20170508, end: 201803

REACTIONS (7)
  - Iron deficiency anaemia [Recovered/Resolved]
  - Graft loss [Unknown]
  - Sepsis [Unknown]
  - Inflammation [Recovered/Resolved with Sequelae]
  - Epstein-Barr virus infection [Unknown]
  - Gastrointestinal infection [Unknown]
  - Cytomegalovirus infection [Unknown]

NARRATIVE: CASE EVENT DATE: 20171120
